FAERS Safety Report 10301461 (Version 2)
Quarter: 2014Q3

REPORT INFORMATION
  Report Type: Report from Study
  Country: US (occurrence: US)
  Receive Date: 20140714
  Receipt Date: 20140714
  Transmission Date: 20150326
  Serious: Yes (Hospitalization, Other)
  Sender: FDA-Public Use
  Company Number: PHEH2014US009871

PATIENT
  Age: 13 Year
  Sex: Male
  Weight: 67 kg

DRUGS (2)
  1. TOBI PODHALER [Suspect]
     Active Substance: TOBRAMYCIN
     Indication: CYSTIC FIBROSIS
     Dosage: 112 MG, BID
     Route: 055
  2. TOBI [Suspect]
     Active Substance: TOBRAMYCIN
     Dosage: UNK UKN, UNK
     Route: 055

REACTIONS (5)
  - Pseudomonas test positive [Recovered/Resolved with Sequelae]
  - Pulmonary function test decreased [Unknown]
  - Staphylococcus test positive [Recovered/Resolved with Sequelae]
  - Rhinovirus infection [Recovered/Resolved with Sequelae]
  - Pulmonary mass [Recovered/Resolved with Sequelae]

NARRATIVE: CASE EVENT DATE: 20131013
